FAERS Safety Report 6866003-2 (Version None)
Quarter: 2010Q3

REPORT INFORMATION
  Report Type: 
  Country: None (occurrence: None)
  Receive Date: 20100722
  Receipt Date: 20100719
  Transmission Date: 20110219
  Serious: Yes (Hospitalization)
  Sender: FDA-Public Use
  Company Number: FR-WYE-G06425810

PATIENT
  Age: 57 Year
  Sex: Male

DRUGS (1)
  1. ADVIL LIQUI-GELS [Suspect]
     Indication: TOOTH EXTRACTION
     Route: 048
     Dates: start: 20100716, end: 20100716

REACTIONS (3)
  - HAEMATEMESIS [None]
  - MELAENA [None]
  - TOOTH SOCKET HAEMORRHAGE [None]
